FAERS Safety Report 5051152-4 (Version None)
Quarter: 2006Q3

REPORT INFORMATION
  Report Type: 
  Country: None (occurrence: None)
  Receive Date: 20060714
  Receipt Date: 20060703
  Transmission Date: 20061208
  Serious: Yes (Other)
  Sender: FDA-Public Use
  Company Number: JP-NOVOPROD-254707

PATIENT
  Age: 67 Year
  Sex: Male

DRUGS (4)
  1. NOVORAPID CHU FLEXPEN [Suspect]
     Indication: DIABETES MELLITUS
     Dosage: 52 IU, QD
     Route: 058
     Dates: start: 20060327, end: 20060403
  2. NOVOLIN R [Suspect]
     Indication: DIABETES MELLITUS
     Dosage: 32 IU, QD
     Route: 058
     Dates: start: 20060324, end: 20060326
  3. NOVOLIN N [Suspect]
     Indication: DIABETES MELLITUS
     Dosage: 44 IU, QD
     Route: 058
     Dates: start: 20060327, end: 20060403
  4. HUMALOG                            /01293501/ [Concomitant]
     Indication: DIABETES MELLITUS
     Route: 058

REACTIONS (1)
  - ENDOCRINE TEST ABNORMAL [None]
